FAERS Safety Report 10254900 (Version 1)
Quarter: 2014Q2

REPORT INFORMATION
  Report Type: Report from Study
  Country: CZ (occurrence: CZ)
  Receive Date: 20140624
  Receipt Date: 20140624
  Transmission Date: 20141212
  Serious: Yes (Death)
  Sender: FDA-Public Use
  Company Number: PHHY2014CZ077642

PATIENT
  Age: 35 Year
  Sex: Male

DRUGS (1)
  1. SANDOSTATIN [Suspect]
     Indication: NEUROENDOCRINE TUMOUR
     Dates: start: 20121012, end: 20131011

REACTIONS (1)
  - Death [Fatal]
